FAERS Safety Report 16791046 (Version 1)
Quarter: 2019Q3

REPORT INFORMATION
  Report Type: Spontaneous
  Country: DE (occurrence: DE)
  Receive Date: 20190910
  Receipt Date: 20190910
  Transmission Date: 20191005
  Serious: Yes (Other)
  Sender: FDA-Public Use
  Company Number: DE-MYLANLABS-2019M1083838

PATIENT
  Age: 38 Year
  Sex: Female
  Weight: 60 kg

DRUGS (7)
  1. FOLS?URE [Concomitant]
     Indication: PROPHYLAXIS OF NEURAL TUBE DEFECT
     Dosage: UNK
     Route: 048
  2. VAGI-HEX [Concomitant]
     Indication: VAGINAL INFECTION
     Dosage: UNK
     Route: 067
     Dates: start: 20180501, end: 20180505
  3. PARTUSISTEN [Concomitant]
     Active Substance: FENOTEROL
     Indication: PRODUCT USED FOR UNKNOWN INDICATION
     Dosage: UNK
     Route: 042
     Dates: start: 20180505, end: 20180507
  4. PRESINOL [Concomitant]
     Active Substance: METHYLDOPA
     Indication: HYPERTENSION
     Dosage: 375 [MG/D ]
     Route: 048
     Dates: start: 20180505, end: 20180624
  5. VAGIFLOR                           /00079701/ [Concomitant]
     Indication: VAGINAL INFECTION
     Dosage: UNK
     Route: 067
     Dates: start: 20180505, end: 20180510
  6. CELESTAN                           /00008501/ [Concomitant]
     Active Substance: BETAMETHASONE
     Indication: MATERNAL THERAPY TO ENHANCE FOETAL LUNG MATURITY
     Dosage: UNK
     Route: 030
     Dates: start: 20180427, end: 20180428
  7. CANDESARTAN. [Suspect]
     Active Substance: CANDESARTAN
     Indication: HYPERTENSION
     Dosage: 8 [MG/D ]
     Route: 048
     Dates: start: 20171025, end: 20180504

REACTIONS (3)
  - Premature labour [Unknown]
  - Maternal exposure during pregnancy [Recovered/Resolved]
  - Oligohydramnios [Recovered/Resolved]
